FAERS Safety Report 6373405-X (Version None)
Quarter: 2009Q3

REPORT INFORMATION
  Report Type: 
  Country: None (occurrence: None)
  Receive Date: 20090924
  Receipt Date: 20090730
  Transmission Date: 20100115
  Serious: Yes (Other)
  Sender: FDA-Public Use
  Company Number: US-ASTRAZENECA-2009UW07550

PATIENT
  Age: 41 Year
  Sex: Male
  Weight: 113.4 kg

DRUGS (4)
  1. SEROQUEL [Suspect]
     Indication: DEPRESSION
     Route: 048
     Dates: start: 20060101, end: 20070101
  2. PAXIL [Concomitant]
  3. HALDOL [Concomitant]
     Dates: start: 19960101, end: 19990101
  4. RISPERDAL [Concomitant]
     Dates: start: 20080101

REACTIONS (4)
  - BLOOD CHOLESTEROL INCREASED [None]
  - DIABETES MELLITUS [None]
  - DIABETIC KETOACIDOSIS [None]
  - FATIGUE [None]
